FAERS Safety Report 4450348-X (Version None)
Quarter: 2004Q3

REPORT INFORMATION
  Report Type: 
  Country: None (occurrence: None)
  Receive Date: 20040915
  Receipt Date: 20040907
  Transmission Date: 20050211
  Serious: Yes (Hospitalization)
  Sender: FDA-Public Use
  Company Number: USA-2004-0016715

PATIENT
  Age: 85 Year
  Sex: Female

DRUGS (1)
  1. SENOKOT [Suspect]
     Indication: CONSTIPATION

REACTIONS (1)
  - ABDOMINAL PAIN UPPER [None]
